FAERS Safety Report 22154584 (Version 1)
Quarter: 2023Q1

REPORT INFORMATION
  Report Type: Spontaneous
  Country: US (occurrence: None)
  Receive Date: 20230330
  Receipt Date: 20230330
  Transmission Date: 20230418
  Serious: Yes (Death, Life-Threatening, Hospitalization, Other)
  Sender: FDA-Public Use
  Company Number: US-MLMSERVICE-20230309-4153190-1

PATIENT
  Age: 52 Year
  Sex: Male

DRUGS (1)
  1. AMIODARONE [Suspect]
     Active Substance: AMIODARONE
     Indication: Atrial fibrillation
     Dosage: FOR MORE THAN ONE YEAR
     Route: 065

REACTIONS (8)
  - Cardio-respiratory arrest [Fatal]
  - Liver function test increased [Fatal]
  - Cardiogenic shock [Fatal]
  - Cardiomyopathy [Fatal]
  - Haemodynamic instability [Fatal]
  - Ventricular tachycardia [Fatal]
  - Atrial fibrillation [Fatal]
  - Hyperthyroidism [Fatal]
